FAERS Safety Report 5058971-9 (Version None)
Quarter: 2006Q2

REPORT INFORMATION
  Report Type: 
  Country: None (occurrence: None)
  Receive Date: 20060629
  Receipt Date: 20060406
  Transmission Date: 20061013
  Serious: No
  Sender: FDA-Public Use
  Company Number: PHEH2006US04637

PATIENT
  Sex: Male

DRUGS (1)
  1. ENABLEX [Suspect]

REACTIONS (1)
  - ANGLE CLOSURE GLAUCOMA [None]
